FAERS Safety Report 9173637 (Version 1)
Quarter: 2013Q1

REPORT INFORMATION
  Report Type: Spontaneous
  Country: ES (occurrence: None)
  Receive Date: 20130318
  Receipt Date: 20130318
  Transmission Date: 20140127
  Serious: Yes (Hospitalization, Other)
  Sender: FDA-Public Use
  Company Number: 2011-11395

PATIENT
  Age: 54 None
  Sex: Male

DRUGS (4)
  1. METFORMIN HYDROCHLORIDE [Suspect]
     Indication: PRODUCT USED FOR UNKNOWN INDICATION
  2. VALSARTAN [Suspect]
     Indication: PRODUCT USED FOR UNKNOWN INDICATION
  3. LANTUS (INSULIN GLARGINE) [Concomitant]
  4. AMLODIPIN [Concomitant]

REACTIONS (14)
  - Lactic acidosis [None]
  - Renal failure acute [None]
  - Hypoglycaemia [None]
  - Hypotension [None]
  - Blindness transient [None]
  - Drug interaction [None]
  - Hyperventilation [None]
  - Diarrhoea [None]
  - Vomiting [None]
  - Haemodialysis [None]
  - Kussmaul respiration [None]
  - Heart rate increased [None]
  - Confusional state [None]
  - Vitreous haemorrhage [None]
